FAERS Safety Report 12891632 (Version 3)
Quarter: 2016Q4

REPORT INFORMATION
  Report Type: Spontaneous
  Country: US (occurrence: US)
  Receive Date: 20161028
  Receipt Date: 20161201
  Transmission Date: 20170207
  Serious: Yes (Other)
  Sender: FDA-Public Use
  Company Number: US-DRREDDYS-USA/USA/16/0084357

PATIENT
  Sex: Female
  Weight: 72.52 kg

DRUGS (3)
  1. ZENATANE [Suspect]
     Active Substance: ISOTRETINOIN
     Route: 048
     Dates: start: 20160809
  2. ZENATANE [Suspect]
     Active Substance: ISOTRETINOIN
     Route: 048
     Dates: start: 20161025
  3. ZENATANE [Suspect]
     Active Substance: ISOTRETINOIN
     Indication: ACNE
     Route: 048
     Dates: start: 20160809

REACTIONS (6)
  - Lip dry [Recovered/Resolved]
  - Affective disorder [Recovered/Resolved]
  - Dry skin [Recovered/Resolved]
  - Crying [Recovered/Resolved]
  - Dry eye [Recovered/Resolved]
  - Fatigue [Recovered/Resolved]
